FAERS Safety Report 8018470-9 (Version None)
Quarter: 2012Q1

REPORT INFORMATION
  Report Type: 
  Country: None (occurrence: None)
  Receive Date: 20120103
  Receipt Date: 20111226
  Transmission Date: 20120608
  Serious: Yes (Hospitalization)
  Sender: FDA-Public Use
  Company Number: JP-ASTELLAS-2011JP009216

PATIENT
  Sex: Female
  Weight: 45 kg

DRUGS (7)
  1. PREDNISOLONE [Concomitant]
     Dosage: 20 MG, UNKNOWN/D
     Route: 042
     Dates: start: 20111128, end: 20111205
  2. PROGRAF [Suspect]
     Dosage: 10 MG, UNKNOWN/D
     Route: 048
     Dates: start: 20111124, end: 20111127
  3. PREDNISOLONE [Concomitant]
     Dosage: 15 MG, UNKNOWN/D
     Route: 042
     Dates: start: 20111206
  4. PROGRAF [Suspect]
     Indication: COLITIS ULCERATIVE
     Dosage: 8 MG, UNKNOWN/D
     Route: 048
     Dates: start: 20111128, end: 20111208
  5. PROGRAF [Suspect]
     Dosage: 5 MG, UNKNOWN/D
     Route: 048
     Dates: start: 20111120, end: 20111123
  6. SULFASALAZINE [Concomitant]
     Dosage: UNK
     Route: 048
     Dates: start: 20111114
  7. PREDNISOLONE [Concomitant]
     Dosage: 30 MG, UNKNOWN/D
     Route: 042
     Dates: start: 20111115, end: 20111127

REACTIONS (1)
  - POST TRANSPLANT DISTAL LIMB SYNDROME [None]
